FAERS Safety Report 8111825-3 (Version None)
Quarter: 2012Q1

REPORT INFORMATION
  Report Type: 
  Country: None (occurrence: None)
  Receive Date: 20120203
  Receipt Date: 20120130
  Transmission Date: 20120608
  Serious: Yes (Congenital Anomaly, Other)
  Sender: FDA-Public Use
  Company Number: US-PFIZER INC-2012026217

PATIENT
  Sex: Male

DRUGS (1)
  1. ZOLOFT [Suspect]
     Route: 064

REACTIONS (4)
  - HEART DISEASE CONGENITAL [None]
  - LIMB DEFORMITY [None]
  - MATERNAL EXPOSURE TIMING UNSPECIFIED [None]
  - TALIPES [None]
